FAERS Safety Report 8460257-7 (Version None)
Quarter: 2012Q2

REPORT INFORMATION
  Report Type: 
  Country: None (occurrence: None)
  Receive Date: 20120622
  Receipt Date: 20120615
  Transmission Date: 20120825
  Serious: Yes (Hospitalization, Other)
  Sender: FDA-Public Use
  Company Number: PHHY2012AU019940

PATIENT
  Sex: Female
  Weight: 100 kg

DRUGS (17)
  1. CHLORHEXIDINE GLUCONATE [Concomitant]
     Dosage: 10 ML, QID
  2. CLOZARIL [Suspect]
     Dosage: 200 MG, UNK
     Route: 048
     Dates: start: 19971003
  3. FLUDROCORTISONE ACETATE [Concomitant]
     Dosage: 1 DF, TAKE ONE TABLET IN THE MORNING
  4. RANITIDINE [Concomitant]
     Indication: ULCER
     Dosage: 1 DF, BID (1 TABLET TWICE A DAY)
  5. POTASSIUM CHLORIDE [Concomitant]
     Dosage: 2 DF, TID (TAKE TWO TABLETS THREE TIMES A DAY WITH FOOD)
  6. VALPROATE SODIUM [Concomitant]
     Dosage: 1 DF, TID (TAKE 1 TABLET IN THE MORNING AND TAKE 2 TABLETS AT NIGHT)
  7. SENNA-MINT WAF [Concomitant]
     Dosage: 2 DF, BID (TAKE TWO TABLETS TWICE A DAY)
  8. MAGNESIUM ASPARTATE [Concomitant]
     Dosage: 3 DF, TID (TAKE TWO TABLETS THREE TIMES A DAY)
  9. PRAVASTATIN [Concomitant]
     Dosage: 2 DF, TAKE TWO TABLETS AT NIGHT
  10. NYSTATIN [Concomitant]
     Dosage: 1 ML, QID
     Route: 048
  11. CLOZAPINE [Suspect]
     Dosage: 200 MG, UNK
     Dates: start: 19971003
  12. GLICLAZIDE [Concomitant]
     Dosage: 2 DF, TAKE TWO TABLETS IN THE MORNING WITH FOOD
  13. SULFAMETHOXAZOLE AND TRIMETHOPRIM [Concomitant]
     Dosage: 1 DF, BID (TWICE A DAY WITH FOOD)
  14. CLOZARIL [Suspect]
     Dosage: 250 MG, UNK
     Dates: start: 20120508
  15. CLOZARIL [Suspect]
     Dosage: 200 MG, UNK
  16. VALACICLOVIR [Concomitant]
     Dosage: 1 DF, BID (TAKE 1 TABLET TWICE A DAY)
  17. DOCUSATE [Concomitant]
     Dosage: 2 DF, BID (TAKE TWO TABLETS TWICE A DAY)

REACTIONS (8)
  - NEUTROPENIA [None]
  - EAR INFECTION [None]
  - WHITE BLOOD CELL COUNT DECREASED [None]
  - WHITE BLOOD CELL COUNT INCREASED [None]
  - NEUTROPHIL COUNT DECREASED [None]
  - NEOPLASM MALIGNANT [None]
  - LYMPHOMA [None]
  - NEUTROPHIL COUNT INCREASED [None]
